FAERS Safety Report 5355934-0 (Version None)
Quarter: 2007Q2

REPORT INFORMATION
  Report Type: 
  Country: None (occurrence: None)
  Receive Date: 20070530
  Receipt Date: 20070222
  Transmission Date: 20071010
  Serious: Yes (Other)
  Sender: FDA-Public Use
  Company Number: US200702004731

PATIENT
  Sex: Male
  Weight: 86.2 kg

DRUGS (2)
  1. ZYPREXA [Suspect]
     Indication: BIPOLAR DISORDER
     Dates: start: 19970101, end: 20030101
  2. DEPAKOTE [Concomitant]

REACTIONS (4)
  - BLOOD CHOLESTEROL INCREASED [None]
  - DISTURBANCE IN ATTENTION [None]
  - HYPERSOMNIA [None]
  - WEIGHT INCREASED [None]
